FAERS Safety Report 16473511 (Version 1)
Quarter: 2019Q2

REPORT INFORMATION
  Report Type: Report from Study
  Country: None (occurrence: US)
  Receive Date: 20190625
  Receipt Date: 20190625
  Transmission Date: 20190711
  Serious: Yes (Hospitalization, Other)
  Sender: FDA-Public Use
  Company Number: US-ABBVIE-19K-163-2727892-00

PATIENT
  Age: 71 Year
  Sex: Female

DRUGS (1)
  1. HUMIRA [Suspect]
     Active Substance: ADALIMUMAB
     Indication: PSORIATIC ARTHROPATHY
     Dosage: HUMIRA CITRATE FREE PEN
     Route: 058

REACTIONS (7)
  - Pain [Unknown]
  - Anxiety [Unknown]
  - Intervertebral disc degeneration [Unknown]
  - Back pain [Unknown]
  - Heart rate increased [Unknown]
  - Blood pressure increased [Unknown]
  - Spinal decompression [Unknown]

NARRATIVE: CASE EVENT DATE: 2019
